FAERS Safety Report 6064837-8 (Version None)
Quarter: 2009Q1

REPORT INFORMATION
  Report Type: 
  Country: None (occurrence: None)
  Receive Date: 20090203
  Receipt Date: 20090203
  Transmission Date: 20090719
  Serious: Yes (Hospitalization)
  Sender: FDA-Public Use
  Company Number: None

PATIENT
  Sex: Male
  Weight: 108.8633 kg

DRUGS (1)
  1. KEPPRA [Suspect]
     Indication: CONVULSION
     Dosage: TAKE 3 TABLETS TWICE A DAY

REACTIONS (3)
  - ABDOMINAL DISCOMFORT [None]
  - CONVULSION [None]
  - FEELING ABNORMAL [None]
